FAERS Safety Report 8984192 (Version 1)
Quarter: 2012Q4

REPORT INFORMATION
  Report Type: Spontaneous
  Country: JP (occurrence: None)
  Receive Date: 20121214
  Receipt Date: 20121214
  Transmission Date: 20130627
  Serious: Yes (Hospitalization, Other)
  Sender: FDA-Public Use
  Company Number: 2009JP007530

PATIENT
  Age: 35 Year
  Sex: Female
  Weight: 91.8 kg

DRUGS (47)
  1. TACROLIMUS [Suspect]
     Indication: LUPUS NEPHRITIS
     Dosage: 3 mg, Unknown/D, Oral
     Route: 048
     Dates: start: 20070605
  2. PREDONINE [Suspect]
     Dosage: 50 mg, Unknown/D, Oral
     Route: 048
     Dates: end: 20070626
  3. PREDONINE [Suspect]
     Dosage: 45 mg, Unknown/D, Oral
     Route: 048
     Dates: start: 20070627, end: 20070705
  4. PREDONINE [Suspect]
     Dosage: 40 mg, Unknown/D, Oral
     Route: 048
     Dates: start: 20070706, end: 20070719
  5. PREDONINE [Suspect]
     Dosage: 35 mg, Unknown/D, Oral
     Route: 048
     Dates: start: 20070720, end: 20070802
  6. PREDONINE [Suspect]
     Dosage: 30 mg, Unknown/D, Oral
     Route: 048
     Dates: start: 20070803, end: 20070816
  7. PREDONINE [Suspect]
     Dosage: 25 mg, Unknown/D, Oral
     Route: 048
     Dates: start: 20070817, end: 20070905
  8. PREDONINE [Suspect]
     Dosage: 20 mg, Unknown/D, Oral
     Route: 048
     Dates: start: 20070906, end: 20070919
  9. PREDONINE [Suspect]
     Route: 048
     Dates: start: 20070920, end: 20071107
  10. PREDONINE [Suspect]
     Dosage: 12.5 mg, Unknown/D, Oral
     Route: 048
     Dates: start: 20071108, end: 20071205
  11. PREDONINE [Suspect]
     Dosage: 10 mg, Unknown/D, Oral
     Route: 048
     Dates: start: 20071205, end: 20090923
  12. PREDONINE [Suspect]
     Dosage: 7.5 mg, Unknown/D, Oral
     Route: 048
     Dates: start: 20090924
  13. PARIET (RABEPRAZOLE SODIUM) [Concomitant]
  14. LASIX (FUROSEMIDE) [Concomitant]
  15. LENDORMIN (BROTIZOLAM) [Concomitant]
  16. DORAL (QUAZEPAM) [Concomitant]
  17. BENZALIN (NITRAZEPAM) [Concomitant]
  18. HIRNAMIN (LEVOMEPROMAZINE MALEATE) [Concomitant]
  19. ZYLORIC (ALLOPURINOL) [Concomitant]
  20. AMOBAN (ZOPICLONE) [Concomitant]
  21. MEILAX (ETHYL LOFLAZEPATE) [Concomitant]
  22. BAKTAR (SULFAMETHOXAZOLE, TRIMETHOPRIM) [Concomitant]
  23. DIOVAN (VALSARTAN) [Concomitant]
  24. LIPITOR (ATORVASTATIN CALCIUM) [Concomitant]
  25. FOSAMAC (ALENDRONATE SODIUM) [Concomitant]
  26. PERSANTIN-L (DIPYRIDAMOLE) [Concomitant]
  27. TOLEDOMIN (MILNACIPRAN HYDROCHLORIDE) [Concomitant]
  28. ATELEC (CILNIDIPINE) [Concomitant]
  29. TANNALBIN (ALBUMIN TANNATE) [Concomitant]
  30. LANDEL (EFONIDIPINE HYDROCHLORIDE) [Concomitant]
  31. ULCERLMIN (SUCRALFATE) [Concomitant]
  32. HIBERNA (PROMETHAZINE HYDROCHLORIDE) [Concomitant]
  33. RISPERDAL (RISPERIDONE) [Concomitant]
  34. ZADITEN (KETOTIFEN FUMARATE) [Concomitant]
  35. AZEPTIN (AZELASTINE HYDROCHLORIDE) [Concomitant]
  36. PATANOL (OLOPATADINE HYDROCHLORIDE) [Concomitant]
  37. VESICARE (SOLIFENACIN) [Concomitant]
  38. AVELOX (MOXIFLOXACIN HYDROCHLORIDE) [Concomitant]
  39. ROCEPHIN (CEFTRIAXONE SODIUM) [Concomitant]
  40. ZITHROMAC (AZITHROMYCIN) [Concomitant]
  41. LAC-B (BIFIDOBACTERIUM LACTIS) [Concomitant]
  42. CRAVIT (LEVOFLOXACIN) [Concomitant]
  43. COCARL (ARACETAMOL) [Concomitant]
  44. SOLITA T 9ELECTROLYTES NOS) [Concomitant]
  45. DEPAS (ETIZOLAM) [Concomitant]
  46. NOVORAPID (INSULIN ASPART) [Concomitant]
  47. LEVEMIR (INSULIN DETEMIR) [Concomitant]

REACTIONS (13)
  - Depression [None]
  - Blood pressure increased [None]
  - Diarrhoea [None]
  - Gastric ulcer [None]
  - Hypersensitivity [None]
  - Diabetes mellitus [None]
  - Bronchitis [None]
  - Upper respiratory tract inflammation [None]
  - Gastroenteritis [None]
  - Osteoporosis [None]
  - Constipation [None]
  - Pyrexia [None]
  - Immunosuppression [None]
